FAERS Safety Report 5717620-4 (Version None)
Quarter: 2008Q2

REPORT INFORMATION
  Report Type: 
  Country: None (occurrence: None)
  Receive Date: 20080425
  Receipt Date: 20080417
  Transmission Date: 20081010
  Serious: Yes (Other)
  Sender: FDA-Public Use
  Company Number: DE-BAYER-200814243GPV

PATIENT
  Sex: Female
  Weight: 80 kg

DRUGS (3)
  1. AVELOX [Suspect]
     Indication: BRONCHITIS
     Route: 048
  2. AMBROXOL [Concomitant]
     Indication: DRUG USE FOR UNKNOWN INDICATION
     Route: 065
  3. MUCOSOLVAN [Concomitant]
     Indication: DRUG USE FOR UNKNOWN INDICATION
     Route: 065

REACTIONS (4)
  - HYPOAESTHESIA [None]
  - MOVEMENT DISORDER [None]
  - PRURITUS [None]
  - RASH MACULAR [None]
